FAERS Safety Report 5097652-2 (Version None)
Quarter: 2006Q3

REPORT INFORMATION
  Report Type: 
  Country: None (occurrence: None)
  Receive Date: 20060901
  Receipt Date: 20060815
  Transmission Date: 20061208
  Serious: Yes (Hospitalization, Other)
  Sender: FDA-Public Use
  Company Number: US200511001847

PATIENT
  Age: 58 Year
  Sex: Female
  Weight: 79.4 kg

DRUGS (3)
  1. ZYPREXA [Suspect]
     Indication: BIPOLAR DISORDER
     Dosage: 10 MG, ORAL
     Route: 048
     Dates: start: 19990501, end: 20050801
  2. DIVALPROEX SODIUM [Concomitant]
  3. NEFAZODONE HCL [Concomitant]

REACTIONS (5)
  - BLOOD CHOLESTEROL ABNORMAL [None]
  - DIABETES MELLITUS NON-INSULIN-DEPENDENT [None]
  - GALLBLADDER DISORDER [None]
  - HYPERTENSION [None]
  - WEIGHT INCREASED [None]
